FAERS Safety Report 5981165-7 (Version None)
Quarter: 2008Q4

REPORT INFORMATION
  Report Type: 
  Country: None (occurrence: None)
  Receive Date: 20081205
  Receipt Date: 20081204
  Transmission Date: 20090506
  Serious: Yes (Death)
  Sender: FDA-Public Use
  Company Number: A0759324A

PATIENT
  Age: 84 Year
  Sex: Female
  Weight: 62 kg

DRUGS (3)
  1. SERETIDE [Suspect]
     Indication: PULMONARY FIBROSIS
     Route: 055
     Dates: start: 20080921, end: 20081129
  2. LOSARTAN POTASSIUM [Concomitant]
     Dates: start: 20030101, end: 20081129
  3. ASPIRIN [Concomitant]
     Dates: start: 20030101, end: 20080101

REACTIONS (1)
  - SEPTIC SHOCK [None]
